FAERS Safety Report 15419235 (Version 1)
Quarter: 2018Q3

REPORT INFORMATION
  Report Type: Spontaneous
  Country: US (occurrence: US)
  Receive Date: 20180924
  Receipt Date: 20180924
  Transmission Date: 20181010
  Serious: No
  Sender: FDA-Public Use
  Company Number: US-PFIZER INC-2018379826

PATIENT
  Age: 10 Year
  Sex: Female

DRUGS (1)
  1. GENOTROPIN [Suspect]
     Active Substance: SOMATROPIN
     Indication: BLOOD GROWTH HORMONE
     Dosage: 1.6 MG, DAILY
     Dates: start: 20180830

REACTIONS (8)
  - Blood triglycerides increased [Unknown]
  - Lack of injection site rotation [Unknown]
  - Injection site pain [Unknown]
  - Intentional product use issue [Unknown]
  - Device issue [Unknown]
  - Incorrect dose administered by device [Unknown]
  - Blood cholesterol increased [Unknown]
  - Very low density lipoprotein increased [Unknown]
